FAERS Safety Report 9126901 (Version 1)
Quarter: 2013Q1

REPORT INFORMATION
  Report Type: Report from Study
  Country: US (occurrence: US)
  Receive Date: 20130122
  Receipt Date: 20130122
  Transmission Date: 20140127
  Serious: Yes (Hospitalization)
  Sender: FDA-Public Use
  Company Number: US-AMGEN-KDC397039

PATIENT
  Age: 66 Year
  Sex: Female

DRUGS (6)
  1. ETANERCEPT [Suspect]
     Indication: PSORIASIS
     Dosage: 50 MG, 2 TIMES/WK
     Route: 058
     Dates: start: 20041111, end: 20080212
  2. ADALIMUMAB [Concomitant]
  3. AMLODIPINE BESILATE [Concomitant]
     Dosage: 5 MG, QD
     Route: 048
  4. BENAZEPRIL [Concomitant]
     Dosage: 40 MG, QD
     Route: 048
  5. CELECOXIB [Concomitant]
  6. NAPROXEN [Concomitant]

REACTIONS (1)
  - Diverticulitis [Recovered/Resolved]
